FAERS Safety Report 25471767 (Version 1)
Quarter: 2025Q2

REPORT INFORMATION
  Report Type: Spontaneous
  Country: CA (occurrence: CA)
  Receive Date: 20250624
  Receipt Date: 20250624
  Transmission Date: 20250716
  Serious: Yes (Life-Threatening, Other)
  Sender: NOVO NORDISK
  Company Number: None

PATIENT
  Age: 82 Year
  Sex: Male
  Weight: 100 kg

DRUGS (1)
  1. OZEMPIC [Suspect]
     Active Substance: SEMAGLUTIDE
     Indication: Diabetes mellitus

REACTIONS (2)
  - Chronic kidney disease [Recovering/Resolving]
  - Fatigue [Recovering/Resolving]
